FAERS Safety Report 9070426 (Version 2)
Quarter: 2013Q4

REPORT INFORMATION
  Report Type: Spontaneous
  Country: US (occurrence: US)
  Receive Date: 20130216
  Receipt Date: 20131216
  Transmission Date: 20140711
  Serious: Yes (Hospitalization, Other)
  Sender: FDA-Public Use
  Company Number: US-009507513-1302USA006723

PATIENT
  Sex: Female
  Weight: 63.49 kg

DRUGS (3)
  1. NUVARING [Suspect]
     Indication: CONTRACEPTION
     Dosage: UNK
     Route: 067
     Dates: start: 20100423, end: 20110116
  2. ALBUTEROL [Concomitant]
     Dosage: UNK
     Dates: start: 2004
  3. PROAIR HFA [Concomitant]
     Dosage: UNK
     Dates: start: 20091125, end: 20110818

REACTIONS (19)
  - Left atrial dilatation [Unknown]
  - Pulmonary infarction [Unknown]
  - Pulmonary embolism [Unknown]
  - Coagulopathy [Unknown]
  - Rheumatoid arthritis [Unknown]
  - Bronchitis [Unknown]
  - Accidental overdose [Unknown]
  - Synovial cyst [Unknown]
  - Urticaria [Unknown]
  - Rubber sensitivity [Unknown]
  - Urticaria [Unknown]
  - Back pain [Not Recovered/Not Resolved]
  - Upper respiratory tract infection [Unknown]
  - Malaise [Not Recovered/Not Resolved]
  - Gastrooesophageal reflux disease [Unknown]
  - Rhinitis allergic [Unknown]
  - Sinusitis [Unknown]
  - Fatigue [Not Recovered/Not Resolved]
  - Menstrual disorder [Unknown]
